FAERS Safety Report 11999158 (Version 1)
Quarter: 2016Q1

REPORT INFORMATION
  Report Type: Other
  Country: GB (occurrence: GB)
  Receive Date: 20160204
  Receipt Date: 20160204
  Transmission Date: 20160526
  Serious: Yes (Other)
  Sender: FDA-Public Use
  Company Number: GB-CIPLA LTD.-2016GB00700

PATIENT

DRUGS (2)
  1. CITALOPRAM [Suspect]
     Active Substance: CITALOPRAM HYDROBROMIDE
     Indication: ANXIETY
     Dosage: 40 MG, UNK
     Route: 065
  2. CANESTEN FLUCONAZOLE [Suspect]
     Active Substance: FLUCONAZOLE
     Indication: CANDIDA INFECTION
     Dosage: 150 MG, UNK
     Route: 048

REACTIONS (5)
  - Drug interaction [Unknown]
  - Local swelling [Recovered/Resolved with Sequelae]
  - Dermatitis allergic [Recovered/Resolved with Sequelae]
  - Blood blister [Recovered/Resolved with Sequelae]
  - Rash pruritic [Recovered/Resolved with Sequelae]

NARRATIVE: CASE EVENT DATE: 20151224
